FAERS Safety Report 10221546 (Version 1)
Quarter: 2014Q2

REPORT INFORMATION
  Report Type: Spontaneous
  Country: US (occurrence: US)
  Receive Date: 20140606
  Receipt Date: 20140606
  Transmission Date: 20141212
  Serious: Yes (Hospitalization)
  Sender: FDA-Public Use
  Company Number: US-JNJFOC-20140519221

PATIENT
  Sex: 0

DRUGS (1)
  1. OLYSIO [Suspect]
     Indication: HEPATITIS
     Route: 048

REACTIONS (3)
  - Hospitalisation [Unknown]
  - Drug dose omission [Not Recovered/Not Resolved]
  - Wrong technique in drug usage process [Unknown]
